FAERS Safety Report 10386853 (Version 1)
Quarter: 2014Q1

REPORT INFORMATION
  Report Type: Spontaneous
  Country: US (occurrence: None)
  Receive Date: 20140306
  Receipt Date: 20140306
  Transmission Date: 20141002
  Serious: Yes (Hospitalization, Other)
  Sender: FDA-Public Use
  Company Number: 163-21880-13093549

PATIENT
  Age: 67 Year
  Sex: Male

DRUGS (3)
  1. REVLIMID (LENALIDOMIDE) (5 MILLIGRAM, CAPSULES) [Suspect]
     Indication: PLASMA CELL MYELOMA
     Route: 048
     Dates: start: 20111216, end: 20130919
  2. GUAIFENESIN [Concomitant]
  3. CALCIUM [Concomitant]

REACTIONS (4)
  - Anaemia [None]
  - Fatigue [None]
  - Urinary tract infection [None]
  - Feeling cold [None]
